FAERS Safety Report 6759296-3 (Version None)
Quarter: 2010Q2

REPORT INFORMATION
  Report Type: 
  Country: None (occurrence: None)
  Receive Date: 20100607
  Receipt Date: 20100527
  Transmission Date: 20101027
  Serious: Yes (Other)
  Sender: FDA-Public Use
  Company Number: BR-PFIZER INC-2010066836

PATIENT
  Sex: Male

DRUGS (2)
  1. VIAGRA [Suspect]
     Indication: ERECTILE DYSFUNCTION
     Dosage: UNK
     Route: 048
  2. LOSARTAN [Concomitant]
     Indication: HYPERTENSION
     Dosage: UNK

REACTIONS (1)
  - BLOOD CHOLESTEROL ABNORMAL [None]
